FAERS Safety Report 6279534-3 (Version None)
Quarter: 2009Q3

REPORT INFORMATION
  Report Type: 
  Country: None (occurrence: None)
  Receive Date: 20090723
  Receipt Date: 20090709
  Transmission Date: 20100115
  Serious: Yes (Life-Threatening)
  Sender: FDA-Public Use
  Company Number: US-JNJFOC-20090702925

PATIENT
  Age: 48 Year
  Sex: Female

DRUGS (5)
  1. ULTRAM [Suspect]
     Indication: DRUG USE FOR UNKNOWN INDICATION
     Route: 048
  2. ASPIRIN [Suspect]
     Indication: DRUG USE FOR UNKNOWN INDICATION
     Route: 065
  3. SEDATIVE/HYPNOTIC [Concomitant]
     Route: 065
  4. ANTI-ANXIETY [Concomitant]
     Route: 065
  5. ANTI-PSYCHOTIC [Concomitant]
     Route: 065

REACTIONS (4)
  - HYPERTENSION [None]
  - MULTIPLE DRUG OVERDOSE [None]
  - RESPIRATORY DISTRESS [None]
  - TACHYCARDIA [None]
